FAERS Safety Report 5289487-2 (Version None)
Quarter: 2007Q2

REPORT INFORMATION
  Report Type: 
  Country: None (occurrence: None)
  Receive Date: 20070402
  Receipt Date: 20070326
  Transmission Date: 20071010
  Serious: Yes (Death, Hospitalization, Other)
  Sender: FDA-Public Use
  Company Number: 163-20785-06090904

PATIENT
  Age: 44 Year
  Sex: Male

DRUGS (1)
  1. THALOMID [Suspect]
     Indication: MULTIPLE MYELOMA
     Dosage: 200 MG, QD, ORAL, 100 MG, QD, ORAL
     Route: 048
     Dates: start: 20060825

REACTIONS (7)
  - FEMUR FRACTURE [None]
  - HIP FRACTURE [None]
  - ILEUS [None]
  - LOSS OF CONSCIOUSNESS [None]
  - MALAISE [None]
  - PATHOLOGICAL FRACTURE [None]
  - RESPIRATORY ARREST [None]
